FAERS Safety Report 9393375 (Version 8)
Quarter: 2015Q1

REPORT INFORMATION
  Report Type: Spontaneous
  Country: BR (occurrence: BR)
  Receive Date: 20130710
  Receipt Date: 20150129
  Transmission Date: 20150721
  Serious: Yes (Other)
  Sender: FDA-Public Use
  Company Number: BR-PFIZER INC-2013175255

PATIENT
  Age: 9 Year
  Sex: Female
  Weight: 27 kg

DRUGS (11)
  1. CHLOROQUINE [Suspect]
     Active Substance: CHLOROQUINE\CHLOROQUINE PHOSPHATE
     Dosage: UNK
  2. BUSCOPAN [Concomitant]
     Active Substance: BUTYLSCOPOLAMINE BROMIDE
     Indication: PAIN
     Dosage: UNK
  3. ENBREL [Suspect]
     Active Substance: ETANERCEPT
     Dosage: 25 MG, 2X/WEEK
     Route: 058
     Dates: start: 2009, end: 201402
  4. PIROXICAM. [Suspect]
     Active Substance: PIROXICAM
     Indication: JUVENILE IDIOPATHIC ARTHRITIS
     Dosage: ONE TABLET (20 MG), AS NEEDED
  5. ALUMINIUM HYDROXIDE [Concomitant]
     Active Substance: ALUMINUM HYDROXIDE
     Indication: GASTRIC DISORDER
     Dosage: 20 MG, 1X/DAY
  6. ENBREL [Suspect]
     Active Substance: ETANERCEPT
     Indication: JUVENILE IDIOPATHIC ARTHRITIS
     Dosage: 25 MG, WEEKLY
     Route: 058
     Dates: start: 200904, end: 2009
  7. PREDNISONE. [Suspect]
     Active Substance: PREDNISONE
     Indication: PAIN
  8. PRIMAQUINE [Suspect]
     Active Substance: PRIMAQUINE PHOSPHATE
     Dosage: UNK
  9. PIROXICAM. [Suspect]
     Active Substance: PIROXICAM
     Indication: PAIN
  10. PREDNISONE. [Suspect]
     Active Substance: PREDNISONE
     Indication: JUVENILE IDIOPATHIC ARTHRITIS
     Dosage: ONE TABLET (20 MG), AS NEEDED
  11. OMEPRAZOLE. [Concomitant]
     Active Substance: OMEPRAZOLE
     Indication: GASTRIC DISORDER
     Dosage: 20 MG, 1X/DAY

REACTIONS (15)
  - Dandruff [Unknown]
  - Drug effect incomplete [Unknown]
  - Musculoskeletal stiffness [Unknown]
  - Anaemia [Unknown]
  - Arthritis infective [Unknown]
  - Calcinosis [Unknown]
  - Neoplasm skin [Unknown]
  - Developmental delay [Unknown]
  - Abdominal pain upper [Unknown]
  - Pain [Unknown]
  - Finger deformity [Unknown]
  - Headache [Recovering/Resolving]
  - Malaria [Unknown]
  - Drug ineffective [Unknown]
  - Alopecia [Unknown]

NARRATIVE: CASE EVENT DATE: 2010
